FAERS Safety Report 12380790 (Version 1)
Quarter: 2016Q2

REPORT INFORMATION
  Report Type: Report from Study
  Country: CN (occurrence: CN)
  Receive Date: 20160518
  Receipt Date: 20160518
  Transmission Date: 20160815
  Serious: Yes (Hospitalization)
  Sender: FDA-Public Use
  Company Number: CN-ROCHE-1759277

PATIENT
  Sex: Male
  Weight: 70 kg

DRUGS (1)
  1. AVASTIN [Suspect]
     Active Substance: BEVACIZUMAB
     Indication: COLON CANCER
     Route: 041
     Dates: start: 20151010

REACTIONS (6)
  - Decreased appetite [Unknown]
  - Anger [Unknown]
  - Poor quality sleep [Unknown]
  - Hepatic function abnormal [Unknown]
  - Transaminases increased [Unknown]
  - Jaundice [Unknown]
